FAERS Safety Report 7205678-5 (Version None)
Quarter: 2010Q4

REPORT INFORMATION
  Report Type: 
  Country: None (occurrence: None)
  Receive Date: 20101231
  Receipt Date: 20101227
  Transmission Date: 20110411
  Serious: Yes (Hospitalization)
  Sender: FDA-Public Use
  Company Number: IT-PFIZER INC-2010179881

PATIENT
  Age: 4 Year
  Sex: Male

DRUGS (2)
  1. IBUPROFEN [Suspect]
     Indication: HYPERPYREXIA
     Dosage: 15 ML, 1X/DAY
     Route: 048
     Dates: start: 20101219, end: 20101219
  2. PARACETAMOL [Concomitant]
     Route: 054

REACTIONS (1)
  - GASTRITIS HAEMORRHAGIC [None]
